FAERS Safety Report 6258867-0 (Version None)
Quarter: 2009Q3

REPORT INFORMATION
  Report Type: 
  Country: None (occurrence: None)
  Receive Date: 20090707
  Receipt Date: 20090701
  Transmission Date: 20100115
  Serious: Yes (Other)
  Sender: FDA-Public Use
  Company Number: FR-BRISTOL-MYERS SQUIBB COMPANY-14612741

PATIENT
  Age: 37 Year
  Sex: Female

DRUGS (2)
  1. TAXOL [Suspect]
     Indication: BREAST CANCER METASTATIC
     Dosage: STOPPED DURING 4 WEEKS
     Route: 042
     Dates: start: 20081120, end: 20090414
  2. AVASTIN [Suspect]
     Indication: BREAST CANCER METASTATIC
     Dosage: STOPPED DURING 4 WEEKS
     Route: 042
     Dates: start: 20081120, end: 20090414

REACTIONS (1)
  - PERICARDIAL EFFUSION [None]
